FAERS Safety Report 4865270-4 (Version None)
Quarter: 2005Q4

REPORT INFORMATION
  Report Type: 
  Country: None (occurrence: None)
  Receive Date: 20051216
  Receipt Date: 20051201
  Transmission Date: 20060501
  Serious: Yes (Hospitalization)
  Sender: FDA-Public Use
  Company Number: DE-2005-018238

PATIENT
  Sex: 0

DRUGS (1)
  1. BETAFERON 250 UG, 500 UG AND COPAXONE(BETAFERON (SH Y03967A)) INJECTIO [Suspect]
     Indication: MULTIPLE SCLEROSIS
     Dosage: 8 OR 16 MIU, EVERY 2D, SUBCUTANEOUS
     Route: 058
     Dates: start: 20050127

REACTIONS (4)
  - ARRHYTHMIA [None]
  - EMBOLIC STROKE [None]
  - LOSS OF CONSCIOUSNESS [None]
  - SPEECH DISORDER [None]
